FAERS Safety Report 15227575 (Version 1)
Quarter: 2018Q3

REPORT INFORMATION
  Report Type: Spontaneous
  Country: IT (occurrence: IT)
  Receive Date: 20180801
  Receipt Date: 20180801
  Transmission Date: 20181010
  Serious: Yes (Other)
  Sender: FDA-Public Use
  Company Number: IT-MYLANLABS-2018M1056431

PATIENT
  Age: 64 Year
  Sex: Female

DRUGS (2)
  1. ATENOLOL. [Suspect]
     Active Substance: ATENOLOL
     Indication: HYPERTENSION
     Dosage: 100 MG, QD
     Route: 048
     Dates: end: 20171120
  2. APROVEL 300 MG TABLETS [Suspect]
     Active Substance: IRBESARTAN
     Indication: HYPERTENSION
     Dosage: 300 MG, QD
     Route: 048
     Dates: end: 20171120

REACTIONS (3)
  - Blood pressure increased [Recovering/Resolving]
  - Hypertensive crisis [Recovering/Resolving]
  - Product measured potency issue [Recovering/Resolving]

NARRATIVE: CASE EVENT DATE: 20171120
